FAERS Safety Report 9301024 (Version 3)
Quarter: 2014Q1

REPORT INFORMATION
  Report Type: Spontaneous
  Country: US (occurrence: US)
  Receive Date: 20130521
  Receipt Date: 20140213
  Transmission Date: 20141002
  Serious: Yes (Other)
  Sender: FDA-Public Use
  Company Number: US-PFIZER INC-2013153557

PATIENT
  Age: 64 Year
  Sex: Female
  Weight: 61.22 kg

DRUGS (7)
  1. ENBREL [Suspect]
     Indication: RHEUMATOID ARTHRITIS
     Dosage: 6 PILLS IN A WEEK
     Dates: start: 2007
  2. METHOTREXATE SODIUM [Suspect]
     Indication: RHEUMATOID ARTHRITIS
     Dosage: 6 PILLS IN A WEEK
     Dates: start: 2007
  3. XELJANZ [Suspect]
     Indication: RHEUMATOID ARTHRITIS
     Dosage: 5 MG, EVERY 12 HOURS
     Dates: start: 201304
  4. LEUCOVORIN [Suspect]
     Dosage: UNK
  5. ORENCIA [Suspect]
     Indication: RHEUMATOID ARTHRITIS
     Dosage: UNK
  6. SIMPONI [Suspect]
     Indication: RHEUMATOID ARTHRITIS
     Dosage: UNK
  7. HUMIRA [Suspect]
     Indication: RHEUMATOID ARTHRITIS
     Dosage: UNK

REACTIONS (9)
  - Rheumatoid arthritis [Unknown]
  - Drug ineffective [Unknown]
  - Dry mouth [Unknown]
  - Finger deformity [Unknown]
  - Malaise [Unknown]
  - Vocal cord cyst [Unknown]
  - Alopecia [Unknown]
  - Paranasal sinus hypersecretion [Unknown]
  - Arthropathy [Unknown]
